FAERS Safety Report 5886691-7 (Version None)
Quarter: 2008Q3

REPORT INFORMATION
  Report Type: 
  Country: None (occurrence: None)
  Receive Date: 20080917
  Receipt Date: 20080910
  Transmission Date: 20090109
  Serious: Yes (Other)
  Sender: FDA-Public Use
  Company Number: PHHY2008CA20941

PATIENT
  Sex: Male

DRUGS (1)
  1. CLOZARIL [Suspect]
     Dosage: 100 MG, UNK
     Route: 048

REACTIONS (3)
  - LETHARGY [None]
  - OVERDOSE [None]
  - PUPILLARY DISORDER [None]
